FAERS Safety Report 9461606 (Version 7)
Quarter: 2013Q4

REPORT INFORMATION
  Report Type: Spontaneous
  Country: US (occurrence: US)
  Receive Date: 20130816
  Receipt Date: 20131028
  Transmission Date: 20140711
  Serious: Yes (Other)
  Sender: FDA-Public Use
  Company Number: US-009507513-1308USA006967

PATIENT
  Age: 22 Year
  Sex: Female
  Weight: 50.34 kg

DRUGS (1)
  1. IMPLANON [Suspect]
     Indication: CONTRACEPTION
     Dosage: UNK
     Route: 058
     Dates: start: 20111229

REACTIONS (12)
  - Haemorrhage [Recovered/Resolved]
  - Medical device complication [Unknown]
  - General anaesthesia [Unknown]
  - Menstruation irregular [Recovered/Resolved]
  - Surgery [Unknown]
  - Device difficult to use [Unknown]
  - Device difficult to use [Unknown]
  - Device difficult to use [Unknown]
  - Device difficult to use [Unknown]
  - Device deployment issue [Unknown]
  - Paraesthesia [Unknown]
  - Scar [Unknown]
